FAERS Safety Report 8132351-1 (Version None)
Quarter: 2012Q1

REPORT INFORMATION
  Report Type: 
  Country: None (occurrence: None)
  Receive Date: 20120213
  Receipt Date: 20120202
  Transmission Date: 20120608
  Serious: Yes (Hospitalization)
  Sender: FDA-Public Use
  Company Number: US-BAYER-2011-049528

PATIENT
  Age: 19 Year
  Sex: Female
  Weight: 65.306 kg

DRUGS (6)
  1. ALDARA [Concomitant]
     Dosage: UNK
     Route: 061
     Dates: start: 20090412
  2. ACETAMINOPHEN [Concomitant]
  3. FLUCONAZOLE [Concomitant]
     Dosage: 150 MG, UNK
     Route: 048
     Dates: start: 20090529
  4. YAZ [Suspect]
     Indication: CONTRACEPTION
     Dosage: 1 DF, QD
     Route: 048
     Dates: start: 20090319, end: 20090714
  5. AMOXICILLIN [Concomitant]
     Dosage: 500 MG, UNK
     Route: 048
     Dates: start: 20090629
  6. NITROFURANTOIN [Concomitant]
     Dosage: 100 MG, UNK
     Route: 048
     Dates: start: 20090529, end: 20090606

REACTIONS (13)
  - APHASIA [None]
  - VIITH NERVE PARALYSIS [None]
  - HYPERAESTHESIA [None]
  - BALANCE DISORDER [None]
  - DIZZINESS [None]
  - READING DISORDER [None]
  - EMOTIONAL DISTRESS [None]
  - ANXIETY [None]
  - MOBILITY DECREASED [None]
  - GAIT DISTURBANCE [None]
  - CEREBRAL INFARCTION [None]
  - PAIN [None]
  - QUALITY OF LIFE DECREASED [None]
